FAERS Safety Report 19167636 (Version 1)
Quarter: 2021Q2

REPORT INFORMATION
  Report Type: Spontaneous
  Country: US (occurrence: US)
  Receive Date: 20210421
  Receipt Date: 20210421
  Transmission Date: 20210717
  Serious: No
  Sender: FDA-Public Use
  Company Number: None

PATIENT
  Age: 50 Year
  Sex: Female
  Weight: 62.14 kg

DRUGS (2)
  1. COSENTYX [Suspect]
     Active Substance: SECUKINUMAB
     Indication: JUVENILE PSORIATIC ARTHRITIS
     Dosage: INJECT 150MG (1 PEN) SUBCUTANEOUSLY ONCE A  WEEK AT WEEKS 1, 2,3 AND 4  AS DIRECTED
     Route: 058
     Dates: start: 202002
  2. COSENTYX [Suspect]
     Active Substance: SECUKINUMAB
     Indication: PSORIATIC ARTHROPATHY
     Dosage: INJECT 150MG (1 PEN) SUBCUTANEOUSLY ONCE A  WEEK AT WEEKS 1, 2,3 AND 4  AS DIRECTED
     Route: 058
     Dates: start: 202002

REACTIONS (2)
  - Illness [None]
  - Therapy interrupted [None]
